FAERS Safety Report 7262603-9 (Version None)
Quarter: 2011Q1

REPORT INFORMATION
  Report Type: 
  Country: None (occurrence: None)
  Receive Date: 20110130
  Receipt Date: 20100909
  Transmission Date: 20110831
  Serious: No
  Sender: FDA-Public Use
  Company Number: US-ABBOTT-10P-163-0670513-00

PATIENT
  Sex: Female
  Weight: 47.216 kg

DRUGS (5)
  1. PAIN MEDICATION [Suspect]
     Indication: PRODUCT USED FOR UNKNOWN INDICATION
  2. DEXILANT [Concomitant]
     Indication: GASTRIC ULCER
  3. METHOTREXATE [Concomitant]
     Indication: RHEUMATOID ARTHRITIS
     Route: 058
  4. HUMIRA [Suspect]
     Indication: RHEUMATOID ARTHRITIS
     Route: 058
     Dates: start: 20100715, end: 20100801
  5. HUMIRA [Suspect]
     Route: 058
     Dates: start: 20100801

REACTIONS (6)
  - INJECTION SITE INDURATION [None]
  - INJECTION SITE ERYTHEMA [None]
  - INJECTION SITE SWELLING [None]
  - RECTAL HAEMORRHAGE [None]
  - HAEMORRHOIDS [None]
  - INJECTION SITE WARMTH [None]
